FAERS Safety Report 9312693 (Version 2)
Quarter: 2013Q2

REPORT INFORMATION
  Report Type: Report from Study
  Country: US (occurrence: US)
  Receive Date: 20130528
  Receipt Date: 20130620
  Transmission Date: 20140414
  Serious: Yes (Life-Threatening, Hospitalization, Other)
  Sender: FDA-Public Use
  Company Number: US-PURDUE-USA-2013-0102599

PATIENT
  Age: 59 Year
  Sex: Female
  Weight: 67.12 kg

DRUGS (6)
  1. OXYCONTIN (NDA 22-272) [Suspect]
     Indication: PAIN
     Dosage: 40 MG, BID
     Route: 048
  2. OXYCONTIN (NDA 22-272) [Suspect]
     Indication: SCIATICA
  3. OXYCODONE HYDROCHLORIDE (SIMILAR TO NDA 22-272) [Concomitant]
  4. COMBIVENT [Concomitant]
  5. PREMARIN [Concomitant]
  6. CARVEDILOL [Concomitant]

REACTIONS (3)
  - Asthma [Unknown]
  - Pneumonia [Unknown]
  - Acute respiratory distress syndrome [Unknown]
